FAERS Safety Report 6960125-3 (Version None)
Quarter: 2010Q3

REPORT INFORMATION
  Report Type: 
  Country: None (occurrence: None)
  Receive Date: 20100901
  Receipt Date: 20100823
  Transmission Date: 20110219
  Serious: Yes (Hospitalization)
  Sender: FDA-Public Use
  Company Number: FR-ASTRAZENECA-2010SE39714

PATIENT
  Age: 29544 Day
  Sex: Male

DRUGS (7)
  1. CRESTOR [Suspect]
     Route: 048
     Dates: start: 20080101
  2. KIVEXA [Suspect]
     Dosage: 600 MG / 300 MG DAILY
     Route: 048
     Dates: start: 20090101
  3. SUSTIVA [Suspect]
     Dates: start: 20040101
  4. VALSARTAN  AND HYDROCHLOROTHIAZIDE [Suspect]
     Dosage: 160 MG / 25 MG DAILY
  5. FENOFIBRATE [Suspect]
  6. LERCANIDIPINE [Suspect]
  7. KARDEGIC [Suspect]

REACTIONS (1)
  - MYOCARDIAL INFARCTION [None]
